FAERS Safety Report 5816992-X (Version None)
Quarter: 2008Q3

REPORT INFORMATION
  Report Type: 
  Country: None (occurrence: None)
  Receive Date: 20080722
  Receipt Date: 20080710
  Transmission Date: 20090109
  Serious: Yes (Other)
  Sender: FDA-Public Use
  Company Number: CA-JNJFOC-20080703200

PATIENT
  Sex: Female

DRUGS (2)
  1. REMICADE [Suspect]
     Dosage: 8TH INFUSION
     Route: 050
  2. REMICADE [Suspect]
     Indication: PATERNAL DRUGS AFFECTING FOETUS
     Dosage: 7 INFUSIONS ON UNSPECIFIED DATES
     Route: 050

REACTIONS (2)
  - DRUG EXPOSURE DURING PREGNANCY [None]
  - INTRA-UTERINE DEATH [None]
